FAERS Safety Report 14999264 (Version 1)
Quarter: 2018Q2

REPORT INFORMATION
  Report Type: Spontaneous
  Country: US (occurrence: US)
  Receive Date: 20180522
  Receipt Date: 20180522
  Transmission Date: 20180711
  Serious: Yes (Life-Threatening, Hospitalization)
  Sender: FDA-Public Use
  Company Number: None

PATIENT
  Age: 70 Year
  Sex: Male
  Weight: 93.15 kg

DRUGS (15)
  1. NUPLAZID [Suspect]
     Active Substance: PIMAVANSERIN TARTRATE
     Indication: DEMENTIA WITH LEWY BODIES
     Dosage: ?          QUANTITY:2 TABLET(S);?
     Route: 048
     Dates: start: 20180421, end: 20180421
  2. ZYLOPRIM [Concomitant]
     Active Substance: ALLOPURINOL
  3. MELATONIN [Concomitant]
     Active Substance: MELATONIN
  4. VITAMIN B12 [Concomitant]
     Active Substance: CYANOCOBALAMIN
  5. SINEMET [Concomitant]
     Active Substance: CARBIDOPA\LEVODOPA
  6. OMEPRAZOLE. [Concomitant]
     Active Substance: OMEPRAZOLE
  7. FLOMAX [Concomitant]
     Active Substance: TAMSULOSIN HYDROCHLORIDE
  8. FISH OIL OMEGA 3 [Concomitant]
     Active Substance: FISH OIL
  9. NUPLAZID [Suspect]
     Active Substance: PIMAVANSERIN TARTRATE
     Indication: HALLUCINATION
     Dosage: ?          QUANTITY:2 TABLET(S);?
     Route: 048
     Dates: start: 20180421, end: 20180421
  10. CELEXA [Concomitant]
     Active Substance: CITALOPRAM HYDROBROMIDE
  11. NAMENDA [Concomitant]
     Active Substance: MEMANTINE HYDROCHLORIDE
  12. UROCIT-K [Concomitant]
     Active Substance: POTASSIUM CITRATE
  13. NUPLAZID [Suspect]
     Active Substance: PIMAVANSERIN TARTRATE
     Indication: PARKINSON^S DISEASE
     Dosage: ?          QUANTITY:2 TABLET(S);?
     Route: 048
     Dates: start: 20180421, end: 20180421
  14. ARICEPT [Concomitant]
     Active Substance: DONEPEZIL HYDROCHLORIDE
  15. ASPIRIN. [Concomitant]
     Active Substance: ASPIRIN

REACTIONS (14)
  - Respiratory disorder [None]
  - Hypothermia [None]
  - Blood potassium decreased [None]
  - Orthostatic hypotension [None]
  - Hyperhidrosis [None]
  - Feeling abnormal [None]
  - Tremor [None]
  - Fatigue [None]
  - Bradycardia [None]
  - Somnolence [None]
  - Speech disorder [None]
  - Blood electrolytes decreased [None]
  - Lethargy [None]
  - Gait disturbance [None]

NARRATIVE: CASE EVENT DATE: 20180421
